FAERS Safety Report 5275078-6 (Version None)
Quarter: 2007Q1

REPORT INFORMATION
  Report Type: 
  Country: None (occurrence: None)
  Receive Date: 20070326
  Receipt Date: 20070315
  Transmission Date: 20070707
  Serious: Yes (Life-Threatening)
  Sender: FDA-Public Use
  Company Number: DE-JNJFOC-20070303461

PATIENT
  Age: 38 Year
  Sex: Female

DRUGS (9)
  1. HALDOL SOLUTAB [Suspect]
     Indication: DRUG USE FOR UNKNOWN INDICATION
     Route: 048
  2. RISPERDAL [Suspect]
     Dosage: RE-STARTED ON AN UNKNOWN DATE, 6 MG
     Route: 048
  3. RISPERDAL [Suspect]
     Indication: DRUG USE FOR UNKNOWN INDICATION
     Dosage: 2-4 MG
     Route: 048
  4. URBASON [Suspect]
     Indication: DRUG USE FOR UNKNOWN INDICATION
     Route: 065
  5. DIAZEPAM [Concomitant]
     Dosage: RE-STARTED ON AN UNKNOWN DATE, 30 MG
     Route: 065
  6. DIAZEPAM [Concomitant]
     Route: 065
  7. AKINETON [Concomitant]
     Route: 048
  8. TAVEGIL [Concomitant]
     Dosage: RE-STARTED ON AN UNKNOWN DATE
     Route: 065
  9. RANITIDINE HCL [Concomitant]
     Route: 048

REACTIONS (1)
  - PULMONARY EMBOLISM [None]
